FAERS Safety Report 16110552 (Version 8)
Quarter: 2020Q3

REPORT INFORMATION
  Report Type: Report from Study
  Country: DE (occurrence: DE)
  Receive Date: 20190325
  Receipt Date: 20200710
  Transmission Date: 20201102
  Serious: Yes (Other)
  Sender: FDA-Public Use
  Company Number: DE-ROCHE-2225987

PATIENT
  Age: 39 Year
  Sex: Female
  Weight: 75 kg

DRUGS (11)
  1. PREDNISOLON [PREDNISOLONE] [Concomitant]
     Active Substance: PREDNISOLONE
     Route: 042
     Dates: start: 20180618, end: 20180618
  2. PREDNISOLUT [PREDNISOLONE HEMISUCCINATE] [Concomitant]
     Indication: PROPHYLAXIS
     Dosage: INDICATION: SIDE EFFECT PROPHYLAXIS IN THE CONTEXT OF OCREVUS ADMINISTRATION
     Route: 042
     Dates: start: 20180604, end: 20180604
  3. RANITIDINE. [Concomitant]
     Active Substance: RANITIDINE
     Dosage: INDICATION: SIDE EFFECT PROPHYLAXIS IN THE CONTEXT OF OCREVUS ADMINISTRATION
     Route: 048
     Dates: start: 20180617, end: 20180619
  4. AERIUS (DESLORATADINE) [Concomitant]
     Active Substance: DESLORATADINE
     Indication: PROPHYLAXIS
     Dosage: INDICATION: SIDE EFFECT PROPHYLAXIS IN THE CONTEXT OF OCREVUS ADMINISTRATION
     Route: 048
     Dates: start: 20180603, end: 20180605
  5. RANITIDINE. [Concomitant]
     Active Substance: RANITIDINE
     Indication: PROPHYLAXIS
     Dosage: INDICATION: SIDE EFFECT PROPHYLAXIS IN THE CONTEXT OF OCREVUS ADMINISTRATION
     Route: 048
     Dates: start: 20180603, end: 20180605
  6. OCRELIZUMAB. [Suspect]
     Active Substance: OCRELIZUMAB
     Indication: MULTIPLE SCLEROSIS
     Dosage: MOST RECENT DOSE WAS RECEIVED ON 18/JUN/2018
     Route: 042
     Dates: start: 20180604
  7. AERIUS (DESLORATADINE) [Concomitant]
     Active Substance: DESLORATADINE
     Dosage: INDICATION: SIDE EFFECT PROPHYLAXIS IN THE CONTEXT OF OCREVUS ADMINISTRATION
     Route: 048
     Dates: start: 20180617, end: 20180619
  8. RANITIDINE. [Concomitant]
     Active Substance: RANITIDINE
     Dosage: INDICATION: SIDE EFFECT PROPHYLAXIS IN THE CONTEXT OF OCREVUS ADMINISTRATION
     Route: 048
     Dates: start: 20190226, end: 20190228
  9. AERIUS (DESLORATADINE) [Concomitant]
     Active Substance: DESLORATADINE
     Dosage: INDICATION: SIDE EFFECT PROPHYLAXIS IN THE CONTEXT OF OCREVUS ADMINISTRATION
     Route: 048
     Dates: start: 20190226, end: 20190228
  10. DEKRISTOL [Concomitant]
     Active Substance: CHOLECALCIFEROL
     Indication: VITAMIN D DEFICIENCY
     Route: 048
     Dates: start: 20140409
  11. PREDNISOLON [PREDNISOLONE] [Concomitant]
     Active Substance: PREDNISOLONE
     Indication: PROPHYLAXIS
     Route: 042
     Dates: start: 20190227, end: 20190227

REACTIONS (2)
  - Abortion spontaneous [Unknown]
  - Maternal exposure during pregnancy [Unknown]

NARRATIVE: CASE EVENT DATE: 20181224
